FAERS Safety Report 23438689 (Version 2)
Quarter: 2024Q1

REPORT INFORMATION
  Report Type: Spontaneous
  Country: US (occurrence: US)
  Receive Date: 20240124
  Receipt Date: 20240328
  Transmission Date: 20240409
  Serious: No
  Sender: FDA-Public Use
  Company Number: US-SA-SAC20240117001183

PATIENT
  Age: 16 Year
  Sex: Female

DRUGS (1)
  1. DUPIXENT [Suspect]
     Active Substance: DUPILUMAB
     Indication: Eosinophilic oesophagitis
     Dosage: 300 MG, QW
     Route: 058
     Dates: start: 20230829

REACTIONS (6)
  - COVID-19 [Unknown]
  - Food allergy [Recovering/Resolving]
  - Oral pruritus [Recovering/Resolving]
  - Abdominal discomfort [Recovering/Resolving]
  - Influenza like illness [Unknown]
  - Injection site rash [Unknown]

NARRATIVE: CASE EVENT DATE: 20231201
